FAERS Safety Report 8252862-8 (Version None)
Quarter: 2012Q2

REPORT INFORMATION
  Report Type: 
  Country: None (occurrence: None)
  Receive Date: 20120402
  Receipt Date: 20120110
  Transmission Date: 20120825
  Serious: No
  Sender: FDA-Public Use
  Company Number: US-ABBOTT-12P-163-0891674-00

PATIENT
  Age: 53 Year
  Sex: Male
  Weight: 65.83 kg

DRUGS (3)
  1. ANDROGEL [Suspect]
     Dates: start: 20110701
  2. ANDROGEL [Suspect]
     Indication: BLOOD TESTOSTERONE DECREASED
     Dates: start: 20100801, end: 20110701
  3. CRESTOR [Concomitant]
     Indication: BLOOD CHOLESTEROL INCREASED

REACTIONS (2)
  - BLOOD TESTOSTERONE INCREASED [None]
  - BLOOD TESTOSTERONE DECREASED [None]
